FAERS Safety Report 8010759-2 (Version None)
Quarter: 2011Q4

REPORT INFORMATION
  Report Type: 
  Country: None (occurrence: None)
  Receive Date: 20111228
  Receipt Date: 20111222
  Transmission Date: 20120403
  Serious: Yes (Hospitalization)
  Sender: FDA-Public Use
  Company Number: JP-EISAI INC-E2090-01918-SPO-JP

PATIENT
  Sex: Female

DRUGS (10)
  1. CARBIDOPA AND LEVODOPA [Suspect]
     Indication: PARKINSON'S DISEASE
     Route: 048
     Dates: end: 20110831
  2. CARBIDOPA AND LEVODOPA [Suspect]
     Route: 048
     Dates: start: 20110901
  3. PERMAX [Concomitant]
  4. ACTONEL [Concomitant]
  5. ZONISAMIDE [Suspect]
     Indication: PARKINSON'S DISEASE
     Route: 048
     Dates: start: 20101101, end: 20110928
  6. MAGMITT [Concomitant]
  7. REQUIP [Concomitant]
  8. YOKU-KAN-SAN [Concomitant]
  9. SEROQUEL [Concomitant]
  10. ARICEPT [Concomitant]

REACTIONS (3)
  - HALLUCINATION, VISUAL [None]
  - DELUSION [None]
  - HALLUCINATION, AUDITORY [None]
